FAERS Safety Report 22197984 (Version 1)
Quarter: 2023Q2

REPORT INFORMATION
  Report Type: Spontaneous
  Country: US (occurrence: US)
  Receive Date: 20230411
  Receipt Date: 20230411
  Transmission Date: 20230721
  Serious: Yes (Hospitalization)
  Sender: FDA-Public Use
  Company Number: US-BAYER-2022A032188

PATIENT
  Age: 49 Year
  Sex: Female

DRUGS (5)
  1. RIVAROXABAN [Interacting]
     Active Substance: RIVAROXABAN
     Indication: Thrombosis
     Route: 065
  2. NURTEC ODT [Interacting]
     Active Substance: RIMEGEPANT SULFATE
     Indication: Headache
     Dosage: UNK
     Route: 048
     Dates: start: 20210803, end: 20211208
  3. NURTEC ODT [Interacting]
     Active Substance: RIMEGEPANT SULFATE
     Indication: Migraine
  4. PROCHLORPERAZINE [Concomitant]
     Active Substance: PROCHLORPERAZINE
     Indication: Vomiting
     Route: 065
  5. TERIFLUNOMIDE [Concomitant]
     Active Substance: TERIFLUNOMIDE
     Indication: Multiple sclerosis
     Route: 065

REACTIONS (6)
  - Drug ineffective [Unknown]
  - Headache [Recovered/Resolved]
  - Drug interaction [Unknown]
  - Emotional disorder [Unknown]
  - Peripheral swelling [Unknown]
  - Drug hypersensitivity [Unknown]
